FAERS Safety Report 7010679 (Version 3)
Quarter: 2017Q1

REPORT INFORMATION
  Report Type: Spontaneous
  Country: JP (occurrence: JP)
  Receive Date: 20090604
  Receipt Date: 20170228
  Transmission Date: 20170429
  Serious: Yes (Other)
  Sender: FDA-Public Use
  Company Number: JP-BRISTOL-MYERS SQUIBB COMPANY-14645824

PATIENT
  Age: 63 Year
  Sex: Male

DRUGS (2)
  1. TAXOL [Suspect]
     Active Substance: PACLITAXEL
     Indication: NON-SMALL CELL LUNG CANCER
     Dosage: SINCE NOV2007 RECEIVED RADIO CHEMOTHERAPY WITH CARBOPLATIN AND PACLITAXEL
     Route: 041
     Dates: start: 200801, end: 200801
  2. PARAPLATIN [Suspect]
     Active Substance: CARBOPLATIN
     Indication: NON-SMALL CELL LUNG CANCER
     Dosage: SINCE NOV2007 RECEIVED RADIO CHEMOTHERAPY WITH CARBOPLATIN AND PACLITAXEL
     Route: 041
     Dates: start: 200801, end: 200801

REACTIONS (2)
  - Mucormycosis [Not Recovered/Not Resolved]
  - Interstitial lung disease [Not Recovered/Not Resolved]
